FAERS Safety Report 9444604 (Version 3)
Quarter: 2013Q4

REPORT INFORMATION
  Report Type: Spontaneous
  Country: US (occurrence: US)
  Receive Date: 20130807
  Receipt Date: 20131029
  Transmission Date: 20140711
  Serious: No
  Sender: FDA-Public Use
  Company Number: US-PFIZER INC-2013225529

PATIENT
  Age: 84 Year
  Sex: Female
  Weight: 76.64 kg

DRUGS (6)
  1. LATANOPROST [Suspect]
     Indication: GLAUCOMA
     Dosage: ONE DROP IN EACH EYE, 1X/DAY
     Route: 047
     Dates: start: 2012, end: 2012
  2. LATANOPROST [Suspect]
     Dosage: UNK
  3. AMLODIPINE [Concomitant]
     Indication: HYPERTENSION
     Dosage: UNK
  4. ATENOLOL [Concomitant]
     Indication: HYPERTENSION
     Dosage: UNK
  5. BABY ASPIRIN [Concomitant]
     Indication: HYPERTENSION
     Dosage: UNK
  6. BENAZEPRIL [Concomitant]
     Indication: HYPERTENSION
     Dosage: UNK

REACTIONS (4)
  - Eye irritation [Unknown]
  - Acne [Unknown]
  - Drug ineffective [Unknown]
  - Blood cholesterol decreased [Unknown]
